FAERS Safety Report 10970395 (Version 2)
Quarter: 2015Q2

REPORT INFORMATION
  Report Type: Spontaneous
  Country: US (occurrence: US)
  Receive Date: 20150331
  Receipt Date: 20150414
  Transmission Date: 20150821
  Serious: No
  Sender: FDA-Public Use
  Company Number: US-SHIRE-US201502823

PATIENT
  Age: 13 Year
  Sex: Male
  Weight: 30.5 kg

DRUGS (1)
  1. ELAPRASE [Suspect]
     Active Substance: IDURSULFASE
     Indication: MUCOPOLYSACCHARIDOSIS II
     Dosage: 18 MG (0.5 MG/KG), 1X/WEEK
     Route: 041

REACTIONS (3)
  - Feeling abnormal [Recovered/Resolved]
  - Rash [Recovered/Resolved]
  - Infusion related reaction [Recovering/Resolving]

NARRATIVE: CASE EVENT DATE: 20150312
